FAERS Safety Report 9413173 (Version 1)
Quarter: 2013Q3

REPORT INFORMATION
  Report Type: Report from Study
  Country: BR (occurrence: BR)
  Receive Date: 20130722
  Receipt Date: 20130722
  Transmission Date: 20140515
  Serious: Yes (Other)
  Sender: FDA-Public Use
  Company Number: PHHY2013BR077714

PATIENT
  Age: 29 Year
  Sex: Female
  Weight: 47 kg

DRUGS (2)
  1. TRILEPTAL [Suspect]
     Indication: CEREBRAL DISORDER
     Dosage: 2 DF, QD (1 TABLET IN THE MORNING AND 1 TABLET AT NIGHT)
     Route: 048
     Dates: start: 201206, end: 201306
  2. TRILEPTAL [Suspect]
     Indication: OFF LABEL USE

REACTIONS (7)
  - Petit mal epilepsy [Recovering/Resolving]
  - Dengue fever [Recovering/Resolving]
  - Syncope [Recovering/Resolving]
  - Affective disorder [Recovering/Resolving]
  - Disturbance in social behaviour [Recovering/Resolving]
  - Dermatitis allergic [Recovering/Resolving]
  - Lymphadenopathy [Recovering/Resolving]
